FAERS Safety Report 6639409-4 (Version None)
Quarter: 2010Q1

REPORT INFORMATION
  Report Type: 
  Country: None (occurrence: None)
  Receive Date: 20100318
  Receipt Date: 20100312
  Transmission Date: 20100710
  Serious: Yes (Hospitalization)
  Sender: FDA-Public Use
  Company Number: US-BIOGENIDEC-2010BI008399

PATIENT
  Age: 60 Year
  Sex: Female
  Weight: 61 kg

DRUGS (14)
  1. AVONEX [Suspect]
     Indication: MULTIPLE SCLEROSIS
     Route: 030
     Dates: start: 20071101
  2. CELEBREX [Concomitant]
     Indication: FIBROMYALGIA
  3. CYMBALTA [Concomitant]
     Indication: ANXIETY
  4. BACLOFEN [Concomitant]
     Indication: MUSCLE SPASMS
  5. MORPHINE [Concomitant]
     Indication: PAIN
  6. PROVIGIL [Concomitant]
     Indication: DEPRESSED LEVEL OF CONSCIOUSNESS
  7. TEGRETOL [Concomitant]
     Indication: TREMOR
  8. PRILOSEC [Concomitant]
     Indication: GASTRIC DISORDER
  9. SPIRONOLACTONE [Concomitant]
     Indication: BLOOD POTASSIUM ABNORMAL
  10. LASIX [Concomitant]
     Indication: BLOOD POTASSIUM ABNORMAL
  11. AMBIEN CR [Concomitant]
     Indication: SLEEP DISORDER
  12. NORCO [Concomitant]
     Indication: PAIN
  13. ONDANSETRON [Concomitant]
     Indication: NAUSEA
  14. ZOLPIDEM [Concomitant]
     Indication: SLEEP DISORDER

REACTIONS (1)
  - SURGERY [None]
